FAERS Safety Report 14874877 (Version 3)
Quarter: 2018Q2

REPORT INFORMATION
  Report Type: Spontaneous
  Country: US (occurrence: US)
  Receive Date: 20180510
  Receipt Date: 20180605
  Transmission Date: 20180711
  Serious: No
  Sender: FDA-Public Use
  Company Number: US-PFIZER INC-2018193537

PATIENT
  Age: 49 Year
  Sex: Female

DRUGS (1)
  1. IBRANCE [Suspect]
     Active Substance: PALBOCICLIB
     Indication: BREAST CANCER FEMALE
     Dosage: 125 MG, CYCLIC (DAILY FOR 21 DAYS)
     Route: 048
     Dates: start: 20180205

REACTIONS (4)
  - Vomiting [Unknown]
  - Mobility decreased [Unknown]
  - Constipation [Unknown]
  - Nausea [Unknown]

NARRATIVE: CASE EVENT DATE: 20180508
